FAERS Safety Report 20833106 (Version 1)
Quarter: 2022Q2

REPORT INFORMATION
  Report Type: Spontaneous
  Country: US (occurrence: US)
  Receive Date: 20220516
  Receipt Date: 20220516
  Transmission Date: 20220720
  Serious: Yes (Other)
  Sender: FDA-Public Use
  Company Number: US-GLAXOSMITHKLINE-USCH2022AMR016041

PATIENT

DRUGS (25)
  1. ADVIL [Suspect]
     Active Substance: IBUPROFEN
     Indication: Product used for unknown indication
     Dosage: UNK
  2. MOTRIN [Suspect]
     Active Substance: IBUPROFEN
     Indication: Pain
     Dosage: UNK
  3. DILANTIN [Suspect]
     Active Substance: PHENYTOIN
     Indication: Seizure
     Dosage: 3 DF, QD
     Route: 048
     Dates: start: 20110302
  4. ALEVE [Suspect]
     Active Substance: NAPROXEN SODIUM
     Indication: Pain
     Dosage: UNK
  5. GOODYS [Suspect]
     Active Substance: ACETAMINOPHEN\ASPIRIN\CAFFEINE
     Indication: Pain
     Dosage: UNK
  6. RETIN-A [Concomitant]
     Active Substance: TRETINOIN
     Indication: Product used for unknown indication
     Dosage: QD
     Route: 048
     Dates: start: 20150327, end: 20160326
  7. HARVONI [Concomitant]
     Active Substance: LEDIPASVIR\SOFOSBUVIR
     Indication: Product used for unknown indication
     Dosage: 1 DF, QD
     Dates: start: 20150327
  8. ZANTAC [Concomitant]
     Active Substance: RANITIDINE HYDROCHLORIDE
     Indication: Product used for unknown indication
     Dosage: 1 DF, BID
     Dates: start: 20150330
  9. KEPPRA [Concomitant]
     Active Substance: LEVETIRACETAM
     Indication: Product used for unknown indication
     Dosage: 1 DF, BID
     Route: 048
     Dates: start: 20150330
  10. HYDROQUINONE [Concomitant]
     Active Substance: HYDROQUINONE
     Indication: Product used for unknown indication
     Dosage: UNK, BID
     Route: 048
     Dates: start: 20140330, end: 20150329
  11. HYDRODIURIL [Concomitant]
     Active Substance: HYDROCHLOROTHIAZIDE
     Indication: Product used for unknown indication
     Dosage: 1 DF, QD
     Route: 048
     Dates: start: 20150330
  12. WELLBUTRIN [Concomitant]
     Active Substance: BUPROPION HYDROCHLORIDE
     Indication: Product used for unknown indication
     Dosage: 1 DF, QD
     Dates: start: 20150330
  13. ASPIRIN [Concomitant]
     Active Substance: ASPIRIN
     Indication: Product used for unknown indication
     Dosage: 1 DF, QD
     Dates: start: 20150330
  14. DITROPAN [Concomitant]
     Active Substance: OXYBUTYNIN CHLORIDE
     Indication: Product used for unknown indication
     Dosage: 1 DF, TID
     Dates: start: 20150330, end: 20160629
  15. EFFEXOR XR [Concomitant]
     Active Substance: VENLAFAXINE HYDROCHLORIDE
     Indication: Product used for unknown indication
     Dosage: 3 DF, QD
     Route: 048
     Dates: start: 20160406
  16. SEROQUEL [Concomitant]
     Active Substance: QUETIAPINE FUMARATE
     Indication: Product used for unknown indication
     Dosage: 1 DF, QD
     Route: 048
     Dates: start: 20150406, end: 20150507
  17. SYNTHROID [Concomitant]
     Active Substance: LEVOTHYROXINE SODIUM
     Indication: Product used for unknown indication
     Dosage: 1 DF, QD
     Route: 048
  18. ASPIRIN [Concomitant]
     Active Substance: ASPIRIN
     Indication: Product used for unknown indication
     Dosage: 1 DF, QD
  19. NAPROSYN [Concomitant]
     Active Substance: NAPROXEN
     Indication: Product used for unknown indication
     Dosage: 1 DF, BID
  20. EFFEXOR XR [Concomitant]
     Active Substance: VENLAFAXINE HYDROCHLORIDE
     Indication: Product used for unknown indication
     Dosage: 3 DF, QD
  21. RISPERDAL [Concomitant]
     Active Substance: RISPERIDONE
     Indication: Product used for unknown indication
     Dosage: 1 DF, QD
     Route: 048
     Dates: start: 20101208, end: 20110308
  22. STELAZINE [Concomitant]
     Active Substance: TRIFLUOPERAZINE HYDROCHLORIDE
     Indication: Product used for unknown indication
     Dosage: 1 DF, QD
     Route: 048
     Dates: start: 20101208, end: 20110308
  23. PAXIL [Concomitant]
     Active Substance: PAROXETINE HYDROCHLORIDE
     Indication: Product used for unknown indication
     Dosage: 1 DF, QD
     Dates: start: 20101208, end: 20111014
  24. LASIX [Concomitant]
     Active Substance: FUROSEMIDE
     Indication: Product used for unknown indication
     Dosage: 1 DF
     Route: 048
     Dates: start: 20101208, end: 20111214
  25. PROPYLTHIOURACIL [Concomitant]
     Active Substance: PROPYLTHIOURACIL
     Indication: Product used for unknown indication
     Dosage: 3 DF, QD
     Dates: start: 20101208, end: 20110302

REACTIONS (27)
  - Cerebellar atrophy [Unknown]
  - Cardiac failure congestive [Unknown]
  - Suicidal ideation [Unknown]
  - Chronic hepatitis C [Unknown]
  - Stevens-Johnson syndrome [Unknown]
  - Neurodegenerative disorder [Unknown]
  - Renal function test abnormal [Unknown]
  - Brain injury [Unknown]
  - Toxicity to various agents [Unknown]
  - Gait disturbance [Unknown]
  - Speech disorder [Unknown]
  - Dysphagia [Unknown]
  - Ataxia [Unknown]
  - Eye disorder [Unknown]
  - Rash macular [Unknown]
  - Ankle fracture [Unknown]
  - Muscular weakness [Unknown]
  - Slow speech [Unknown]
  - Tooth injury [Unknown]
  - Intervertebral disc degeneration [Unknown]
  - Body height decreased [Unknown]
  - Posture abnormal [Unknown]
  - Fracture pain [Unknown]
  - Pain [Unknown]
  - Vitamin D deficiency [Unknown]
  - Chest pain [Unknown]
  - Rash [Unknown]

NARRATIVE: CASE EVENT DATE: 20220214
